FAERS Safety Report 14020342 (Version 1)
Quarter: 2017Q3

REPORT INFORMATION
  Report Type: Spontaneous
  Country: US (occurrence: US)
  Receive Date: 20170928
  Receipt Date: 20170928
  Transmission Date: 20171128
  Serious: Yes (Other)
  Sender: FDA-Public Use
  Company Number: US-TEVA-809335ACC

PATIENT
  Age: 28 Year
  Sex: Female
  Weight: 65.38 kg

DRUGS (1)
  1. PARAGARD T 380A [Suspect]
     Active Substance: COPPER
     Indication: CONTRACEPTION
     Dates: start: 20170414

REACTIONS (3)
  - Fungal infection [Unknown]
  - Device dislocation [Not Recovered/Not Resolved]
  - Discomfort [Unknown]

NARRATIVE: CASE EVENT DATE: 20170915
